FAERS Safety Report 5029915-0 (Version None)
Quarter: 2006Q2

REPORT INFORMATION
  Report Type: 
  Country: None (occurrence: None)
  Receive Date: 20060620
  Receipt Date: 20060602
  Transmission Date: 20061013
  Serious: Yes (Disabling, Other)
  Sender: FDA-Public Use
  Company Number: US-GLAXOSMITHKLINE-A0608150A

PATIENT
  Age: 59 Year
  Sex: Male
  Weight: 74.5 kg

DRUGS (4)
  1. ZOFRAN [Suspect]
     Dosage: 1MG TWICE PER DAY
     Route: 048
     Dates: start: 20060418, end: 20060502
  2. XELODA [Suspect]
     Dosage: 900MG TWICE PER DAY
     Route: 048
     Dates: start: 20060418
  3. RADIATION [Concomitant]
  4. CHEMOTHERAPY [Concomitant]

REACTIONS (8)
  - ABDOMINAL DISTENSION [None]
  - ANOREXIA [None]
  - EATING DISORDER [None]
  - FATIGUE [None]
  - LACTOSE INTOLERANCE [None]
  - NAUSEA [None]
  - PHARMACEUTICAL PRODUCT COMPLAINT [None]
  - WEIGHT DECREASED [None]
